FAERS Safety Report 7290786-3 (Version None)
Quarter: 2011Q1

REPORT INFORMATION
  Report Type: 
  Country: None (occurrence: None)
  Receive Date: 20110201
  Receipt Date: 20110121
  Transmission Date: 20110831
  Serious: Yes (Hospitalization, Other)
  Sender: FDA-Public Use
  Company Number: 2009AC000054

PATIENT
  Age: 62 Year
  Sex: Female
  Weight: 150.1406 kg

DRUGS (85)
  1. CARDIZEM [Concomitant]
  2. PAXIL [Concomitant]
  3. INDERAL [Concomitant]
  4. DESITIN [Concomitant]
  5. METFORMIN [Concomitant]
  6. LORTAB [Concomitant]
  7. ADVAIR DISKUS 100/50 [Concomitant]
  8. LYRICA [Concomitant]
  9. CARVEDILOL [Concomitant]
  10. FENTANYL [Concomitant]
  11. ASPIRIN [Concomitant]
  12. INSULIN [Concomitant]
  13. PERCOCET [Concomitant]
  14. LASIX [Concomitant]
  15. GLYBURIDE [Concomitant]
  16. VALIUM [Concomitant]
  17. SEREVENT [Concomitant]
  18. NYSTATIN [Concomitant]
  19. DOXYCYLINE HYCLATE [Concomitant]
  20. CYCLOBENZAPRINE [Concomitant]
  21. LASIX [Concomitant]
  22. ASPIRIN [Concomitant]
  23. POTASSIUM [Concomitant]
  24. INSULIN [Concomitant]
  25. ATROVENT [Concomitant]
  26. PRILOSEC [Concomitant]
  27. DUONEB [Concomitant]
  28. FLAGYL [Concomitant]
  29. NEXIUM [Concomitant]
  30. POTASSIUM CHLORIDE [Concomitant]
  31. GLUCOPHAGE [Concomitant]
  32. FUROSEMIDE [Concomitant]
  33. DIGOXIN [Suspect]
     Indication: HEART RATE IRREGULAR
     Dosage: 0.125 MG; QD; PO
     Route: 048
  34. DIGOXIN [Suspect]
     Dosage: 0.25 MG; PO
     Route: 048
     Dates: start: 20081201
  35. COREG [Concomitant]
  36. ASPIRIN [Concomitant]
  37. LISINOPRIL [Concomitant]
  38. CARDIZEM [Concomitant]
  39. CARTIXT XT [Concomitant]
  40. IBUPROFEN [Concomitant]
  41. AZMACORT [Concomitant]
  42. PROVENTIL [Concomitant]
  43. LASIX [Concomitant]
  44. DIGOXIN [Suspect]
     Dosage: 0.125 MG; QD; PO
     Route: 048
     Dates: start: 20060101
  45. ALBUTEROL [Concomitant]
  46. LANTUS [Concomitant]
  47. NEBULIZER [Concomitant]
  48. LOVENOX [Concomitant]
  49. METFORMIN [Concomitant]
  50. DOC-Q-LACE [Concomitant]
  51. CARDIZEM [Concomitant]
  52. CARDIZEM [Concomitant]
  53. PRILOSEC [Concomitant]
  54. INSULIN [Concomitant]
  55. AZMACORT [Concomitant]
  56. TYLOX [Concomitant]
  57. COUMADIN [Concomitant]
  58. LASIX [Concomitant]
  59. POTASSIUM [Concomitant]
  60. HYDROCODONE [Concomitant]
  61. FUROSEMIDE [Concomitant]
  62. CARTIA XT [Concomitant]
  63. HUMALOG [Concomitant]
  64. AMINOPHYLLINE [Concomitant]
  65. NITROGLYCERIN [Concomitant]
  66. LORTAB [Concomitant]
  67. MICRO-K [Concomitant]
  68. GLUCOPHAGE [Concomitant]
  69. XANAX [Concomitant]
  70. VALIUM [Concomitant]
  71. LANTUS [Concomitant]
  72. ALTACE [Concomitant]
  73. IMITREX [Concomitant]
  74. VALIUM [Concomitant]
  75. COUMADIN [Concomitant]
  76. GLUCOPHAGE [Concomitant]
  77. MOTRIN [Concomitant]
  78. OXYCONTIN [Concomitant]
  79. BACTRIM DS [Concomitant]
  80. WARFARIN [Concomitant]
  81. GLYBURIDE [Concomitant]
  82. NORFLEX [Concomitant]
  83. MIDRIN [Concomitant]
  84. ATROVENT [Concomitant]
  85. CARDIZEM [Concomitant]

REACTIONS (51)
  - IMPAIRED WORK ABILITY [None]
  - CORONARY ARTERY DISEASE [None]
  - ASTHMA [None]
  - DEPRESSION [None]
  - GASTROINTESTINAL DISORDER [None]
  - OBESITY [None]
  - NEUROPATHY PERIPHERAL [None]
  - TRICUSPID VALVE DISEASE [None]
  - SOCIAL AVOIDANT BEHAVIOUR [None]
  - CARDIAC FAILURE CONGESTIVE [None]
  - HYPERTENSION [None]
  - BLOOD CHOLESTEROL INCREASED [None]
  - CELLULITIS [None]
  - AORTIC ARTERIOSCLEROSIS [None]
  - ARTERIOSCLEROSIS CORONARY ARTERY [None]
  - ATRIAL FLUTTER [None]
  - MYOCARDIAL INFARCTION [None]
  - DIABETES MELLITUS INADEQUATE CONTROL [None]
  - DIABETIC ULCER [None]
  - ABASIA [None]
  - BURNS THIRD DEGREE [None]
  - FALL [None]
  - SLEEP APNOEA SYNDROME [None]
  - INJURY [None]
  - CHRONIC OBSTRUCTIVE PULMONARY DISEASE [None]
  - SCHIZOPHRENIA [None]
  - BIPOLAR DISORDER [None]
  - TACHYCARDIA [None]
  - CLOSTRIDIUM COLITIS [None]
  - UPPER RESPIRATORY TRACT INFECTION [None]
  - CONTUSION [None]
  - CORONARY ARTERY OCCLUSION [None]
  - ATRIAL FIBRILLATION [None]
  - ANGINA PECTORIS [None]
  - UTERINE CANCER [None]
  - INTERVERTEBRAL DISC PROTRUSION [None]
  - HALLUCINATION [None]
  - ECONOMIC PROBLEM [None]
  - ANXIETY [None]
  - DIARRHOEA [None]
  - UPPER LIMB FRACTURE [None]
  - MITRAL VALVE DISEASE [None]
  - FURUNCLE [None]
  - PAIN [None]
  - DEEP VEIN THROMBOSIS [None]
  - ARTHROPATHY [None]
  - BACK PAIN [None]
  - LOCALISED INFECTION [None]
  - VENTRICULAR FIBRILLATION [None]
  - ABSCESS [None]
  - BUNDLE BRANCH BLOCK LEFT [None]
